FAERS Safety Report 4618496-9 (Version None)
Quarter: 2005Q1

REPORT INFORMATION
  Report Type: 
  Country: None (occurrence: None)
  Receive Date: 20050324
  Receipt Date: 20050309
  Transmission Date: 20050727
  Serious: Yes (Hospitalization)
  Sender: FDA-Public Use
  Company Number: IL-2005-003441

PATIENT
  Age: 47 Year

DRUGS (1)
  1. BETAFERON (BETAFERON (SH Y 579E)  (INTERFERON BETA-1B) INJECTION, 250? [Suspect]
     Indication: MULTIPLE SCLEROSIS
     Dosage: EVERY 2D, SUBCUTANEOUS
     Route: 058
     Dates: start: 20040517

REACTIONS (1)
  - COUGH [None]
